FAERS Safety Report 5810982-9 (Version None)
Quarter: 2008Q3

REPORT INFORMATION
  Report Type: 
  Country: None (occurrence: None)
  Receive Date: 20080710
  Receipt Date: 20080630
  Transmission Date: 20090109
  Serious: Yes (Other)
  Sender: FDA-Public Use
  Company Number: CHNY2008GB02504

PATIENT
  Age: 48 Year
  Sex: Male

DRUGS (1)
  1. LAMISIL (TERBINAFINE HYDROCHLORIDE0 CREAM [Suspect]
     Dosage: 2 APPLICATIONS DAILY, TOPICAL
     Route: 061
     Dates: start: 20080417

REACTIONS (3)
  - GLOMERULAR FILTRATION RATE DECREASED [None]
  - RENAL IMPAIRMENT [None]
  - WHITE BLOOD CELL COUNT DECREASED [None]
